FAERS Safety Report 9546822 (Version 1)
Quarter: 2013Q3

REPORT INFORMATION
  Report Type: Spontaneous
  Country: FR (occurrence: FR)
  Receive Date: 20130924
  Receipt Date: 20130924
  Transmission Date: 20140515
  Serious: Yes (Hospitalization, Other)
  Sender: FDA-Public Use
  Company Number: FR-BRISTOL-MYERS SQUIBB COMPANY-19374602

PATIENT
  Age: 87 Year
  Sex: Female

DRUGS (14)
  1. ONGLYZA TABS 5 MG [Suspect]
  2. SOTALOL HCL TABS 80 MG [Interacting]
  3. KALEORID [Interacting]
     Dosage: KALEORID SR 1000 MG TABLET
  4. ALPRAZOLAM [Interacting]
     Dosage: ALPRAZOLAM MYLAN 0.50 MG TABLET
  5. ESOMEPRAZOLE [Interacting]
     Dosage: ESOMEPRAZOLE MYLAN 40 MG CAPSULE
  6. STRESAM [Interacting]
     Dosage: STRESAM 50 MG CAPSULE (ETIFOXINE
  7. FUROSEMIDE [Interacting]
     Dosage: FUROSEMIDE MYLAN 40 MG TABLET
  8. LORAZEPAM [Interacting]
     Dosage: LORAZEPAM MYLAN 1 MG TABLET
  9. RAMIPRIL [Interacting]
     Dosage: RAMIPRIL MYLAN 10 MG TABLET
  10. BISOPROLOL [Interacting]
     Dosage: BISOCE 5 MG TABLET (BISOPROLOL)
  11. GLIMEPIRIDE [Interacting]
     Dosage: GLIMEPIRIDE MYLAN 2MG TABLET
  12. TARDYFERON [Interacting]
     Dosage: TARDYFERON 80 MG TABLET
  13. DOMPERIDONE [Interacting]
     Dosage: DOMPERIDONE MYLAN 20 MG TABLET
  14. PRADAXA [Interacting]
     Dosage: PRADAXA 110 MG CAPSULE

REACTIONS (2)
  - Syncope [Unknown]
  - Drug interaction [Unknown]
